FAERS Safety Report 6691734-7 (Version None)
Quarter: 2010Q2

REPORT INFORMATION
  Report Type: 
  Country: None (occurrence: None)
  Receive Date: 20100422
  Receipt Date: 20090501
  Transmission Date: 20101027
  Serious: No
  Sender: FDA-Public Use
  Company Number: US-ASTRAZENECA-2009UW11243

PATIENT
  Age: 70 Year
  Sex: Male

DRUGS (1)
  1. TOPROL-XL [Suspect]
     Indication: ARTERIOSCLEROSIS
     Route: 048

REACTIONS (1)
  - DELUSIONAL DISORDER, UNSPECIFIED TYPE [None]
